FAERS Safety Report 17538179 (Version 2)
Quarter: 2020Q1

REPORT INFORMATION
  Report Type: Report from Study
  Country: US (occurrence: US)
  Receive Date: 20200313
  Receipt Date: 20200318
  Transmission Date: 20200409
  Serious: Yes (Hospitalization)
  Sender: FDA-Public Use
  Company Number: US-JNJFOC-20200310901

PATIENT
  Age: 18 Year
  Sex: Female
  Weight: 52.9 kg

DRUGS (30)
  1. HUMIRA [Suspect]
     Active Substance: ADALIMUMAB
     Indication: PRODUCT USED FOR UNKNOWN INDICATION
     Route: 065
     Dates: start: 20190313
  2. AMPHOTERICIN B, LIPOSOME [Concomitant]
     Active Substance: AMPHOTERICIN B
     Indication: PRODUCT USED FOR UNKNOWN INDICATION
     Route: 065
  3. MAGNESIUM OXIDE. [Concomitant]
     Active Substance: MAGNESIUM OXIDE
     Indication: PRODUCT USED FOR UNKNOWN INDICATION
     Route: 065
  4. SERTRALINE [Concomitant]
     Active Substance: SERTRALINE HYDROCHLORIDE
     Indication: PRODUCT USED FOR UNKNOWN INDICATION
     Route: 065
  5. INFLIXIMAB, RECOMBINANT [Suspect]
     Active Substance: INFLIXIMAB
     Indication: INFLAMMATORY BOWEL DISEASE
     Route: 042
     Dates: start: 20170424, end: 201903
  6. DESMOPRESSIN [Concomitant]
     Active Substance: DESMOPRESSIN
     Indication: PRODUCT USED FOR UNKNOWN INDICATION
     Route: 065
  7. MOMETASONE [Concomitant]
     Active Substance: MOMETASONE
     Indication: PRODUCT USED FOR UNKNOWN INDICATION
     Route: 065
  8. VORICONAZOLE. [Concomitant]
     Active Substance: VORICONAZOLE
     Indication: PRODUCT USED FOR UNKNOWN INDICATION
  9. MIDODRINE [Concomitant]
     Active Substance: MIDODRINE
     Indication: PRODUCT USED FOR UNKNOWN INDICATION
     Route: 065
  10. CETIRIZINE HYDROCHLORIDE. [Concomitant]
     Active Substance: CETIRIZINE HYDROCHLORIDE
     Indication: PRODUCT USED FOR UNKNOWN INDICATION
     Route: 065
  11. DEXLANSOPRAZOLE [Concomitant]
     Active Substance: DEXLANSOPRAZOLE
     Indication: PRODUCT USED FOR UNKNOWN INDICATION
     Route: 065
  12. PREDNISONE. [Concomitant]
     Active Substance: PREDNISONE
     Indication: PRODUCT USED FOR UNKNOWN INDICATION
     Route: 065
  13. NORGESTIMATE AND ETHINYL ESTRADIOL [Concomitant]
     Active Substance: ETHINYL ESTRADIOL\NORGESTIMATE
     Indication: PRODUCT USED FOR UNKNOWN INDICATION
     Route: 065
  14. POLYETHYLENE GLYCOL [Concomitant]
     Active Substance: POLYETHYLENE GLYCOLS
     Indication: PRODUCT USED FOR UNKNOWN INDICATION
     Route: 065
  15. ENOXAPARIN SODIUM. [Concomitant]
     Active Substance: ENOXAPARIN SODIUM
     Indication: PRODUCT USED FOR UNKNOWN INDICATION
     Route: 065
  16. POTASSIUM CHLORIDE. [Concomitant]
     Active Substance: POTASSIUM CHLORIDE
     Indication: PRODUCT USED FOR UNKNOWN INDICATION
     Route: 065
  17. ONDANSETRON [Concomitant]
     Active Substance: ONDANSETRON
     Indication: PRODUCT USED FOR UNKNOWN INDICATION
     Route: 065
  18. MELATONIN [Concomitant]
     Active Substance: MELATONIN
     Indication: PRODUCT USED FOR UNKNOWN INDICATION
     Route: 065
  19. RIZATRIPTAN BENZOATE. [Concomitant]
     Active Substance: RIZATRIPTAN BENZOATE
     Indication: PRODUCT USED FOR UNKNOWN INDICATION
     Route: 065
  20. SUCRALFATE. [Concomitant]
     Active Substance: SUCRALFATE
     Indication: PRODUCT USED FOR UNKNOWN INDICATION
     Route: 065
  21. MONTELUKAST [Concomitant]
     Active Substance: MONTELUKAST SODIUM
     Indication: PRODUCT USED FOR UNKNOWN INDICATION
     Route: 065
  22. DEXTROAMPHET SACCHARAT, AMPHET ASPARTATE, DEXTROAMPHET SULFATE AND AMPHET SULFAT [Concomitant]
     Active Substance: AMPHETAMINE ASPARTATE\AMPHETAMINE SULFATE\DEXTROAMPHETAMINE SACCHARATE\DEXTROAMPHETAMINE SULFATE
     Indication: PRODUCT USED FOR UNKNOWN INDICATION
     Route: 065
  23. RIFAXIMIN. [Concomitant]
     Active Substance: RIFAXIMIN
     Indication: PRODUCT USED FOR UNKNOWN INDICATION
     Route: 065
  24. VERAPAMIL [Concomitant]
     Active Substance: VERAPAMIL HYDROCHLORIDE
     Indication: PRODUCT USED FOR UNKNOWN INDICATION
     Route: 065
  25. ALBUTEROL                          /00139501/ [Concomitant]
     Active Substance: ALBUTEROL
     Indication: PRODUCT USED FOR UNKNOWN INDICATION
     Route: 065
  26. METHOTREXATE. [Suspect]
     Active Substance: METHOTREXATE
     Indication: PRODUCT USED FOR UNKNOWN INDICATION
     Route: 065
  27. AMITRIPTYLINE [Concomitant]
     Active Substance: AMITRIPTYLINE
     Indication: PRODUCT USED FOR UNKNOWN INDICATION
     Route: 065
  28. CELECOXIB. [Concomitant]
     Active Substance: CELECOXIB
     Indication: PRODUCT USED FOR UNKNOWN INDICATION
     Route: 065
  29. DICYCLOMINE                        /00068601/ [Concomitant]
     Active Substance: DICYCLOMINE HYDROCHLORIDE
     Indication: PRODUCT USED FOR UNKNOWN INDICATION
     Route: 065
  30. FOLIC ACID. [Concomitant]
     Active Substance: FOLIC ACID
     Indication: PRODUCT USED FOR UNKNOWN INDICATION
     Route: 065

REACTIONS (1)
  - Bronchitis haemophilus [Recovered/Resolved]

NARRATIVE: CASE EVENT DATE: 201909
